FAERS Safety Report 9045672 (Version 1)
Quarter: 2013Q1

REPORT INFORMATION
  Report Type: Report from Study
  Country: US (occurrence: US)
  Receive Date: 20130131
  Receipt Date: 20130131
  Transmission Date: 20140127
  Serious: No
  Sender: FDA-Public Use
  Company Number: US-ABBOTT-12P-163-1013185-00

PATIENT
  Sex: Male

DRUGS (3)
  1. HUMIRA [Suspect]
     Indication: CROHN^S DISEASE
     Dates: start: 20120704
  2. SLEEPING PILL [Concomitant]
     Indication: INSOMNIA
     Dosage: AT NIGHT
  3. CHOLESTYRAMINE [Concomitant]
     Indication: GASTROINTESTINAL DISORDER
     Dosage: POWDER 1-2 TIMES A DAY

REACTIONS (3)
  - Injection site haemorrhage [Unknown]
  - Device malfunction [Unknown]
  - Incorrect dose administered [Unknown]
